FAERS Safety Report 7242832-0 (Version None)
Quarter: 2011Q1

REPORT INFORMATION
  Report Type: 
  Country: None (occurrence: None)
  Receive Date: 20110125
  Receipt Date: 20110114
  Transmission Date: 20110831
  Serious: Yes (Other)
  Sender: FDA-Public Use
  Company Number: PHFR2010GB04348

PATIENT
  Sex: Male

DRUGS (2)
  1. QUETIAPINE [Concomitant]
  2. CLOZARIL [Suspect]
     Indication: SCHIZOPHRENIA
     Route: 048
     Dates: start: 20100422, end: 20100827

REACTIONS (3)
  - NEUTROPENIA [None]
  - BLOOD PRESSURE INCREASED [None]
  - FOOD POISONING [None]
